FAERS Safety Report 9904691 (Version 1)
Quarter: 2014Q1

REPORT INFORMATION
  Report Type: Report from Study
  Country: NZ (occurrence: NZ)
  Receive Date: 20140218
  Receipt Date: 20140218
  Transmission Date: 20141002
  Serious: Yes (Other)
  Sender: FDA-Public Use
  Company Number: NZ-JNJFOC-20140209049

PATIENT
  Sex: Female
  Weight: 100 kg

DRUGS (2)
  1. REMICADE [Suspect]
     Indication: CROHN^S DISEASE
     Dosage: AFTER APPROX 6 INFUSION
     Route: 042
     Dates: start: 2008
  2. REMICADE [Suspect]
     Indication: CROHN^S DISEASE
     Route: 042
     Dates: end: 2009

REACTIONS (1)
  - Lupus-like syndrome [Recovered/Resolved]
